FAERS Safety Report 16303241 (Version 2)
Quarter: 2020Q4

REPORT INFORMATION
  Report Type: Spontaneous
  Country: US (occurrence: US)
  Receive Date: 20190513
  Receipt Date: 20201204
  Transmission Date: 20210113
  Serious: Yes (Death, Other)
  Sender: FDA-Public Use
  Company Number: US-ASTRAZENECA-2019SE63599

PATIENT
  Age: 29558 Day
  Sex: Male

DRUGS (61)
  1. PRILOSEC [Suspect]
     Active Substance: OMEPRAZOLE MAGNESIUM
     Indication: GASTROOESOPHAGEAL REFLUX DISEASE
     Dosage: GENERIC
     Route: 065
     Dates: start: 200807, end: 201201
  2. PROTONIX [Suspect]
     Active Substance: PANTOPRAZOLE SODIUM
     Indication: GASTROOESOPHAGEAL REFLUX DISEASE
     Dosage: GENERIC
     Route: 065
     Dates: start: 201906, end: 201908
  3. ACIPHEX [Suspect]
     Active Substance: RABEPRAZOLE SODIUM
     Indication: GASTROOESOPHAGEAL REFLUX DISEASE
     Route: 065
     Dates: start: 200809, end: 200810
  4. FAMOTIDINE/PEPCID [Concomitant]
     Dates: start: 201612, end: 20191010
  5. AMOXICILLIN. [Concomitant]
     Active Substance: AMOXICILLIN
  6. CELEBREX [Concomitant]
     Active Substance: CELECOXIB
  7. PREDNISOLONE ACETATE. [Concomitant]
     Active Substance: PREDNISOLONE ACETATE
  8. PREVACID [Suspect]
     Active Substance: LANSOPRAZOLE
     Route: 065
     Dates: start: 200604, end: 200812
  9. PROTONIX [Suspect]
     Active Substance: PANTOPRAZOLE SODIUM
     Indication: GASTROOESOPHAGEAL REFLUX DISEASE
     Route: 065
     Dates: start: 201201, end: 201202
  10. QUESTRAN [Concomitant]
     Active Substance: CHOLESTYRAMINE
  11. VITAMIN C [Concomitant]
     Active Substance: ASCORBIC ACID
  12. MIRALAX [Concomitant]
     Active Substance: POLYETHYLENE GLYCOL 3350
  13. MORPHINE [Concomitant]
     Active Substance: MORPHINE
  14. DEXILANT [Suspect]
     Active Substance: DEXLANSOPRAZOLE
     Indication: GASTROOESOPHAGEAL REFLUX DISEASE
     Route: 065
     Dates: start: 201202, end: 201203
  15. PROTONIX [Suspect]
     Active Substance: PANTOPRAZOLE SODIUM
     Indication: GASTROOESOPHAGEAL REFLUX DISEASE
     Dosage: GENERIC
     Route: 065
     Dates: start: 201112, end: 201610
  16. AMLODIPINE [Concomitant]
     Active Substance: AMLODIPINE BESYLATE
     Indication: HYPERTENSION
     Dates: start: 201503, end: 20191010
  17. LEVOTHYROXINE. [Concomitant]
     Active Substance: LEVOTHYROXINE
     Indication: HYPOTHYROIDISM
     Dates: start: 200805, end: 20191010
  18. TRAMADOL. [Concomitant]
     Active Substance: TRAMADOL
     Indication: PAIN
     Dates: start: 201110, end: 20191010
  19. LEVOTHYROXINE SODIUM. [Concomitant]
     Active Substance: LEVOTHYROXINE SODIUM
  20. ALPHAGAN P [Concomitant]
     Active Substance: BRIMONIDINE TARTRATE
  21. KETOROLAC [Concomitant]
     Active Substance: KETOROLAC TROMETHAMINE
  22. PRILOSEC [Suspect]
     Active Substance: OMEPRAZOLE MAGNESIUM
     Indication: GASTROOESOPHAGEAL REFLUX DISEASE
     Route: 048
     Dates: start: 200604, end: 200812
  23. ACIPHEX [Suspect]
     Active Substance: RABEPRAZOLE SODIUM
     Indication: GASTROOESOPHAGEAL REFLUX DISEASE
     Route: 065
     Dates: end: 2009
  24. CALCITRIOL. [Concomitant]
     Active Substance: CALCITRIOL
     Dates: start: 201510, end: 20191010
  25. PROMETHAZINE [Concomitant]
     Active Substance: PROMETHAZINE HYDROCHLORIDE
     Indication: NAUSEA
     Dates: start: 201908, end: 20191010
  26. ULORIC [Concomitant]
     Active Substance: FEBUXOSTAT
     Indication: GOUT
     Dates: start: 201207, end: 201610
  27. MULTIVITAMIN [Concomitant]
     Active Substance: VITAMINS
     Dates: start: 1996, end: 20191010
  28. FAMOTIDINE/PEPCID [Concomitant]
     Dates: start: 201309
  29. DORZOLAMIDE HYDROCHLORIDE. [Concomitant]
     Active Substance: DORZOLAMIDE HYDROCHLORIDE
  30. CLARITHROMYCIN. [Concomitant]
     Active Substance: CLARITHROMYCIN
  31. ALENDRONATE SODIUM. [Concomitant]
     Active Substance: ALENDRONATE SODIUM
  32. HYOSCYAMINE. [Concomitant]
     Active Substance: HYOSCYAMINE
  33. NEXIUM [Suspect]
     Active Substance: ESOMEPRAZOLE MAGNESIUM
     Indication: GASTROOESOPHAGEAL REFLUX DISEASE
     Route: 048
     Dates: start: 200604, end: 200812
  34. NEXIUM [Suspect]
     Active Substance: ESOMEPRAZOLE MAGNESIUM
     Indication: GASTROOESOPHAGEAL REFLUX DISEASE
     Route: 048
     Dates: start: 200901, end: 201104
  35. PRILOSEC [Suspect]
     Active Substance: OMEPRAZOLE MAGNESIUM
     Indication: GASTROOESOPHAGEAL REFLUX DISEASE
     Route: 048
     Dates: start: 200604, end: 200707
  36. SKELAXIN [Concomitant]
     Active Substance: METAXALONE
     Indication: PAIN
     Dates: start: 201503, end: 201508
  37. DRONABINOL. [Concomitant]
     Active Substance: DRONABINOL
  38. TRAMADOL HYDROCHLORIDE. [Concomitant]
     Active Substance: TRAMADOL HYDROCHLORIDE
  39. HYDROCORTISONE. [Concomitant]
     Active Substance: HYDROCORTISONE
  40. PROTONIX [Suspect]
     Active Substance: PANTOPRAZOLE SODIUM
     Indication: GASTROOESOPHAGEAL REFLUX DISEASE
     Route: 065
     Dates: start: 201210, end: 201212
  41. FURSEMIDE [Concomitant]
     Active Substance: FUROSEMIDE
     Indication: DIURETIC THERAPY
     Dates: start: 200802, end: 201510
  42. BUMETANIDE. [Concomitant]
     Active Substance: BUMETANIDE
     Indication: OEDEMA
     Dates: start: 201905, end: 20191010
  43. OMEGA 3 [Concomitant]
     Active Substance: OMEGA-3 FATTY ACIDS
     Dates: start: 2000, end: 20191010
  44. RANITIDINE. [Concomitant]
     Active Substance: RANITIDINE
     Dosage: GENERIC
     Dates: start: 201611, end: 201612
  45. COSOPT [Concomitant]
     Active Substance: DORZOLAMIDE HYDROCHLORIDE\TIMOLOL MALEATE
  46. SEVELAMER HYDROCHLORIDE. [Concomitant]
     Active Substance: SEVELAMER HYDROCHLORIDE
  47. AZITHROMYCIN ANHYDROUS. [Concomitant]
     Active Substance: AZITHROMYCIN ANHYDROUS
  48. PROTONIX [Suspect]
     Active Substance: PANTOPRAZOLE SODIUM
     Indication: GASTROOESOPHAGEAL REFLUX DISEASE
     Route: 065
     Dates: start: 201610
  49. VITAMIN D3 [Concomitant]
     Active Substance: CHOLECALCIFEROL
     Dates: start: 201502, end: 20191010
  50. FERROUS SULFATE. [Concomitant]
     Active Substance: FERROUS SULFATE
  51. TAMIFLU [Concomitant]
     Active Substance: OSELTAMIVIR PHOSPHATE
  52. HYDRALAZINE [Concomitant]
     Active Substance: HYDRALAZINE HYDROCHLORIDE
  53. METRONIDAZOLE. [Concomitant]
     Active Substance: METRONIDAZOLE
  54. ONDANSETRON [Concomitant]
     Active Substance: ONDANSETRON
  55. PROTONIX [Suspect]
     Active Substance: PANTOPRAZOLE SODIUM
     Indication: GASTROOESOPHAGEAL REFLUX DISEASE
     Route: 065
     Dates: start: 200604, end: 200812
  56. ACETAMINOPHEN. [Concomitant]
     Active Substance: ACETAMINOPHEN
     Indication: PAIN
     Dates: start: 2012, end: 20191010
  57. FLOMAX [Concomitant]
     Active Substance: TAMSULOSIN HYDROCHLORIDE
  58. CHERATUSSIN [Concomitant]
     Active Substance: AMMONIUM CHLORIDE\DEXTROMETHORPHAN\SODIUM CITRATE
  59. LUMIGAN [Concomitant]
     Active Substance: BIMATOPROST
  60. VITAMIN B [Concomitant]
     Active Substance: VITAMIN B
  61. LYSINE HYDROCHLORIDE [Concomitant]
     Active Substance: LYSINE HYDROCHLORIDE

REACTIONS (8)
  - Renal failure [Fatal]
  - Nephrogenic anaemia [Unknown]
  - Chronic kidney disease [Unknown]
  - Hyperparathyroidism secondary [Unknown]
  - Tubulointerstitial nephritis and uveitis syndrome [Unknown]
  - Metabolic acidosis [Unknown]
  - Acute kidney injury [Unknown]
  - End stage renal disease [Unknown]

NARRATIVE: CASE EVENT DATE: 20140902
